FAERS Safety Report 15014265 (Version 1)
Quarter: 2018Q2

REPORT INFORMATION
  Report Type: Report from Study
  Country: FR (occurrence: FR)
  Receive Date: 20180615
  Receipt Date: 20180615
  Transmission Date: 20180711
  Serious: Yes (Death, Other)
  Sender: FDA-Public Use
  Company Number: FR-ROCHE-2134886

PATIENT

DRUGS (4)
  1. CAPECITABINE. [Suspect]
     Active Substance: CAPECITABINE
     Indication: COLON CANCER STAGE III
     Route: 065
  2. LEUCOVORIN. [Suspect]
     Active Substance: LEUCOVORIN
     Indication: COLON CANCER STAGE III
     Route: 065
  3. OXALIPLATIN. [Suspect]
     Active Substance: OXALIPLATIN
     Indication: COLON CANCER STAGE III
     Route: 065
  4. FLUOROURACIL. [Suspect]
     Active Substance: FLUOROURACIL
     Indication: COLON CANCER STAGE III
     Route: 065

REACTIONS (16)
  - Pulmonary fibrosis [Fatal]
  - Vomiting [Unknown]
  - Fatigue [Unknown]
  - Hypersensitivity [Unknown]
  - Thrombocytopenia [Unknown]
  - Glioblastoma [Fatal]
  - Febrile neutropenia [Fatal]
  - Infarction [Fatal]
  - Large intestine perforation [Fatal]
  - Cerebral haemorrhage [Fatal]
  - Neutropenia [Unknown]
  - Neuropathy peripheral [Unknown]
  - Diarrhoea [Unknown]
  - Nausea [Unknown]
  - Sepsis [Fatal]
  - Pulmonary embolism [Fatal]
